FAERS Safety Report 6399308-2 (Version None)
Quarter: 2009Q4

REPORT INFORMATION
  Report Type: 
  Country: None (occurrence: None)
  Receive Date: 20091014
  Receipt Date: 20071128
  Transmission Date: 20100525
  Serious: Yes (Other)
  Sender: FDA-Public Use
  Company Number: US-ASTRAZENECA-2006UW08142

PATIENT
  Age: 44 Year
  Sex: Male
  Weight: 118.8 kg

DRUGS (20)
  1. SEROQUEL [Suspect]
     Indication: BIPOLAR DISORDER
     Route: 048
     Dates: start: 20000601, end: 20070101
  2. SEROQUEL [Suspect]
     Indication: ANXIETY
     Route: 048
     Dates: start: 20000601, end: 20070101
  3. SEROQUEL [Suspect]
     Dosage: 100MG TO 400MG
     Route: 048
     Dates: start: 20020723
  4. SEROQUEL [Suspect]
     Dosage: 100MG TO 400MG
     Route: 048
     Dates: start: 20020723
  5. ZYPREXA [Concomitant]
  6. OXYCODONE [Concomitant]
  7. PERCOCET [Concomitant]
     Dosage: 5/325 MG AS REQUIRED
     Route: 048
     Dates: start: 20010506
  8. DEPAKOTE [Concomitant]
     Dates: start: 19980424
  9. TRAZODONE [Concomitant]
     Route: 048
     Dates: start: 19980424
  10. CITALOPRAM HYDROBROMIDE [Concomitant]
     Route: 048
     Dates: start: 20020723
  11. ETODOLAC [Concomitant]
     Route: 048
     Dates: start: 20020723
  12. AMRIX [Concomitant]
     Route: 048
     Dates: start: 20020723
  13. REMERON [Concomitant]
     Route: 048
     Dates: start: 20010506
  14. LISINOPRIL [Concomitant]
     Route: 048
     Dates: start: 20020723
  15. RABEPRAZOLE [Concomitant]
     Route: 048
     Dates: start: 20020723
  16. SIMVASTATIN [Concomitant]
     Dosage: 20 MG TO 40 MG
     Route: 048
     Dates: start: 20021230
  17. ELAVIL [Concomitant]
     Route: 048
     Dates: start: 20021230
  18. OLANZAPINE [Concomitant]
     Route: 048
     Dates: start: 20021230
  19. ZOLMITRIPTAN [Concomitant]
     Dosage: 5 MG REQUIRED
     Route: 048
     Dates: start: 20051110
  20. GABAPENTIN [Concomitant]
     Route: 048
     Dates: start: 20040331

REACTIONS (4)
  - DIABETES MELLITUS [None]
  - HYPERGLYCAEMIA [None]
  - NEUROPATHY PERIPHERAL [None]
  - TYPE 2 DIABETES MELLITUS [None]
